FAERS Safety Report 10142739 (Version 1)
Quarter: 2014Q2

REPORT INFORMATION
  Report Type: Spontaneous
  Country: US (occurrence: None)
  Receive Date: 20140425
  Receipt Date: 20140425
  Transmission Date: 20141212
  Serious: Yes (Hospitalization)
  Sender: FDA-Public Use
  Company Number: UTC-044046

PATIENT
  Age: 52 Year
  Sex: Female

DRUGS (4)
  1. TYVASO (0.6 MILLIGRAM/MILLILITERS, AEROSOL FOR INHALATION) (TREPROSTINIL SODIUM) [Suspect]
     Route: 055
     Dates: start: 20110407
  2. WARFARIN (WARFARIN) (UNKNOWN) [Concomitant]
  3. TRACLEER (BOSENTAN) (UNKNOWN) [Concomitant]
  4. ADCIRCA (TADALAFIL) [Concomitant]

REACTIONS (3)
  - Pulmonary oedema [None]
  - Pulmonary embolism [None]
  - Renal haemorrhage [None]
